FAERS Safety Report 16254636 (Version 2)
Quarter: 2019Q2

REPORT INFORMATION
  Report Type: Spontaneous
  Country: IT (occurrence: IT)
  Receive Date: 20190430
  Receipt Date: 20190530
  Transmission Date: 20190711
  Serious: Yes (Hospitalization)
  Sender: FDA-Public Use
  Company Number: IT-ACCORD-124878

PATIENT
  Age: 66 Year
  Sex: Female
  Weight: 81 kg

DRUGS (5)
  1. CARBOPLATIN TEVA [Interacting]
     Active Substance: CARBOPLATIN
     Indication: OVARIAN CANCER STAGE III
     Route: 042
     Dates: start: 20180627, end: 20181010
  2. AVASTIN [Interacting]
     Active Substance: BEVACIZUMAB
     Indication: OVARIAN CANCER STAGE III
     Dosage: STRENGTH 25 MG / ML
     Route: 042
     Dates: start: 20180718
  3. TRIATEC [Concomitant]
     Indication: HYPERTENSION
     Dosage: STRENGTH: 5 MG, TABLETS
  4. PACLITAXEL/PACLITAXEL LIPOSOME [Suspect]
     Active Substance: PACLITAXEL
     Indication: OVARIAN CANCER STAGE III
     Route: 042
     Dates: start: 20180627, end: 20181010
  5. EUTIROX [Concomitant]
     Active Substance: LEVOTHYROXINE SODIUM
     Indication: BASEDOW^S DISEASE
     Dosage: STRENGTH: 100 MICROGRAMS TABLETS

REACTIONS (5)
  - Myalgia [Recovering/Resolving]
  - Drug interaction [Unknown]
  - Guillain-Barre syndrome [Recovering/Resolving]
  - Polyneuropathy [Recovering/Resolving]
  - Peripheral venous disease [Recovering/Resolving]

NARRATIVE: CASE EVENT DATE: 20190225
